FAERS Safety Report 7472231-8 (Version None)
Quarter: 2011Q2

REPORT INFORMATION
  Report Type: 
  Country: None (occurrence: None)
  Receive Date: 20110502
  Receipt Date: 20110421
  Transmission Date: 20111010
  Serious: Yes (Hospitalization)
  Sender: FDA-Public Use
  Company Number: FR-005188

PATIENT
  Sex: Male

DRUGS (7)
  1. LANSOPRAZOLE [Suspect]
     Indication: REFLUX OESOPHAGITIS
     Dosage: (15 MG QD ORAL)
     Route: 048
  2. NITRODERM [Concomitant]
  3. FIRMAGON [Suspect]
     Indication: NEOPLASM PROSTATE
     Dosage: (80 MG 1X/MONTH SUBCUTANEOUS)
     Route: 058
     Dates: start: 20100713, end: 20110104
  4. SOTALOL HCL [Concomitant]
  5. ASPIRIN [Concomitant]
  6. FORLAX [Concomitant]
  7. MORPHINE SULFATE [Concomitant]

REACTIONS (2)
  - NEOPLASM PROSTATE [None]
  - PANCREATITIS ACUTE [None]
